FAERS Safety Report 7923511-0 (Version None)
Quarter: 2011Q4

REPORT INFORMATION
  Report Type: 
  Country: None (occurrence: None)
  Receive Date: 20111117
  Receipt Date: 20110203
  Transmission Date: 20120403
  Serious: Yes (Other)
  Sender: FDA-Public Use
  Company Number: US-AMGEN-USASP2011006799

PATIENT
  Age: 63 Year
  Sex: Female

DRUGS (2)
  1. TRAMADOL HCL [Concomitant]
  2. ENBREL [Suspect]
     Indication: RHEUMATOID ARTHRITIS
     Dosage: 25 MG, 2 TIMES/WK
     Dates: start: 20050101

REACTIONS (7)
  - POISONING [None]
  - ADVERSE DRUG REACTION [None]
  - DYSGEUSIA [None]
  - BRONCHITIS [None]
  - INFECTION [None]
  - CONVULSION [None]
  - ANIMAL BITE [None]
